FAERS Safety Report 14728137 (Version 1)
Quarter: 2018Q2

REPORT INFORMATION
  Report Type: Spontaneous
  Country: US (occurrence: US)
  Receive Date: 20180406
  Receipt Date: 20180406
  Transmission Date: 20180711
  Serious: No
  Sender: FDA-Public Use
  Company Number: US-GALDERMA-US17006609

PATIENT
  Sex: Female

DRUGS (6)
  1. PROACTIV GENTLE FORMULA CLARIFYING CLEANSER [Concomitant]
     Active Substance: SALICYLIC ACID
     Route: 061
     Dates: start: 20170519, end: 20170708
  2. PROACTIV OIL FREE MOISTURE SPF 15 [Concomitant]
     Route: 061
     Dates: start: 20170519, end: 20170708
  3. PROACTIV MD ADAPALENE ACNE TREATMENT [Suspect]
     Active Substance: ADAPALENE
     Indication: PRODUCT USED FOR UNKNOWN INDICATION
     Dosage: 0.1%
     Route: 061
     Dates: start: 20170519, end: 20170708
  4. PROACTIV RENEWING CLEANSER [Concomitant]
     Active Substance: BENZOYL PEROXIDE
     Route: 061
     Dates: start: 20170519, end: 20170708
  5. PROACTIV REPAIRING TREATMENT [Concomitant]
     Active Substance: BENZOYL PEROXIDE
     Route: 061
     Dates: start: 20170519, end: 20170708
  6. PROACTIV REVITALIZING TONER (COSMETICS) [Concomitant]
     Active Substance: COSMETICS
     Route: 061
     Dates: start: 20170519, end: 20170708

REACTIONS (2)
  - Skin burning sensation [Recovering/Resolving]
  - Acne [Recovering/Resolving]

NARRATIVE: CASE EVENT DATE: 20170619
